FAERS Safety Report 15002021 (Version 1)
Quarter: 2018Q2

REPORT INFORMATION
  Report Type: Report from Study
  Country: US (occurrence: US)
  Receive Date: 20180612
  Receipt Date: 20180612
  Transmission Date: 20180711
  Serious: Yes (Other)
  Sender: FDA-Public Use
  Company Number: US-TAKEDA-2018MPI004444

PATIENT
  Sex: Female
  Weight: 59 kg

DRUGS (1)
  1. VELCADE [Suspect]
     Active Substance: BORTEZOMIB
     Indication: PLASMA CELL MYELOMA
     Dosage: 2.3 MG, 1/WEEK
     Route: 058

REACTIONS (4)
  - Plasmacytoma [Unknown]
  - Haemoglobin decreased [Unknown]
  - Fatigue [Unknown]
  - Haematocrit decreased [Unknown]
